FAERS Safety Report 24984398 (Version 2)
Quarter: 2025Q1

REPORT INFORMATION
  Report Type: Spontaneous
  Country: JO (occurrence: JO)
  Receive Date: 20250219
  Receipt Date: 20250220
  Transmission Date: 20250408
  Serious: Yes (Other)
  Sender: HIKMA
  Company Number: JO-HIKMA PHARMACEUTICALS-JO-H14001-25-01482

PATIENT
  Sex: Female

DRUGS (3)
  1. IFOSFAMIDE [Suspect]
     Active Substance: IFOSFAMIDE
     Indication: Sarcoma uterus
     Route: 041
     Dates: start: 202408, end: 202409
  2. DOXORUBICIN [Concomitant]
     Active Substance: DOXORUBICIN
     Indication: Product used for unknown indication
     Route: 065
  3. MESNA [Concomitant]
     Active Substance: MESNA
     Indication: Product used for unknown indication
     Route: 065

REACTIONS (6)
  - Irritability [Unknown]
  - Hallucination [Unknown]
  - Restlessness [Unknown]
  - Confusional state [Unknown]
  - Coma [Recovered/Resolved]
  - Off label use [Unknown]

NARRATIVE: CASE EVENT DATE: 20240901
